FAERS Safety Report 6611358-7 (Version None)
Quarter: 2010Q1

REPORT INFORMATION
  Report Type: 
  Country: None (occurrence: None)
  Receive Date: 20100303
  Receipt Date: 20100224
  Transmission Date: 20100710
  Serious: Yes (Other)
  Sender: FDA-Public Use
  Company Number: US-NAPPMUNDI-USA-2009-0041184

PATIENT
  Sex: Male

DRUGS (2)
  1. OXYCONTIN [Suspect]
     Indication: NEUROPATHY PERIPHERAL
     Dosage: UNK
     Dates: start: 20010915, end: 20070815
  2. OXYCONTIN [Suspect]
     Indication: PAIN

REACTIONS (8)
  - DEMENTIA [None]
  - DRUG DEPENDENCE [None]
  - DRUG WITHDRAWAL SYNDROME [None]
  - NEUROPATHY PERIPHERAL [None]
  - SOMNAMBULISM [None]
  - SOMNOLENCE [None]
  - UPPER LIMB FRACTURE [None]
  - WRIST FRACTURE [None]
